FAERS Safety Report 13246261 (Version 1)
Quarter: 2017Q1

REPORT INFORMATION
  Report Type: Spontaneous
  Country: US (occurrence: US)
  Receive Date: 20170217
  Receipt Date: 20170217
  Transmission Date: 20170428
  Serious: No
  Sender: FDA-Public Use
  Company Number: US-009507513-1702USA005421

PATIENT
  Age: 45 Year
  Sex: Female

DRUGS (1)
  1. SINGULAIR [Suspect]
     Active Substance: MONTELUKAST SODIUM
     Indication: CAPSULAR CONTRACTURE ASSOCIATED WITH BREAST IMPLANT
     Dosage: 10 MG / ONCE DAILY AT HOUR OF SLEEP
     Route: 048
     Dates: start: 20170123

REACTIONS (2)
  - Product use issue [Unknown]
  - Abnormal dreams [Not Recovered/Not Resolved]

NARRATIVE: CASE EVENT DATE: 20170123
